FAERS Safety Report 6374127-1 (Version None)
Quarter: 2009Q3

REPORT INFORMATION
  Report Type: 
  Country: None (occurrence: None)
  Receive Date: 20090924
  Receipt Date: 20090619
  Transmission Date: 20100115
  Serious: No
  Sender: FDA-Public Use
  Company Number: US-ASTRAZENECA-2009UW16447

PATIENT
  Sex: Male

DRUGS (4)
  1. SEROQUEL [Suspect]
     Indication: POST-TRAUMATIC STRESS DISORDER
     Route: 048
     Dates: start: 20020601
  2. SEROQUEL [Suspect]
     Indication: ANXIETY
     Route: 048
     Dates: start: 20020601
  3. BUSPIRONE HCL [Concomitant]
  4. ALPRAZOLAM [Concomitant]

REACTIONS (3)
  - FEELING ABNORMAL [None]
  - HEART RATE INCREASED [None]
  - NIGHTMARE [None]
